FAERS Safety Report 4950050-1 (Version None)
Quarter: 2006Q1

REPORT INFORMATION
  Report Type: 
  Country: None (occurrence: None)
  Receive Date: 20060320
  Receipt Date: 20060320
  Transmission Date: 20060701
  Serious: No
  Sender: FDA-Public Use
  Company Number: None

PATIENT
  Age: 35 Year
  Sex: Female
  Weight: 61.2356 kg

DRUGS (1)
  1. AMBIEN [Suspect]
     Indication: INITIAL INSOMNIA
     Dosage: 1 TABET AT BEDTIME OTIC

REACTIONS (2)
  - AMNESIA [None]
  - SOMNOLENCE [None]
